FAERS Safety Report 4679257-8 (Version None)
Quarter: 2005Q2

REPORT INFORMATION
  Report Type: 
  Country: None (occurrence: None)
  Receive Date: 20050531
  Receipt Date: 20050531
  Transmission Date: 20051028
  Serious: No
  Sender: FDA-Public Use
  Company Number: None

PATIENT
  Sex: Female
  Weight: 93 kg

DRUGS (8)
  1. IDARUBICIN HCL [Suspect]
     Dosage: 12MG/M2 IV OVER 1 HR. QD ON DAYS 1, 2, AND 3
     Dates: start: 20050519
  2. CYTARABINE [Suspect]
     Dosage: 1.5 G/M2 CIV OVER 24 HRS X 4 DAYS
     Dates: start: 20050519
  3. LEVOFLOXACIN [Concomitant]
  4. ONDANSETRON [Concomitant]
  5. VALACYCLOVIR HCL [Concomitant]
  6. VANCOMYCIN [Concomitant]
  7. VORICONAZOLE [Concomitant]
  8. CEFEPIME [Concomitant]

REACTIONS (5)
  - ABDOMINAL DISTENSION [None]
  - ABDOMINAL PAIN [None]
  - BODY TEMPERATURE INCREASED [None]
  - DIARRHOEA [None]
  - NAUSEA [None]
